FAERS Safety Report 11418666 (Version 1)
Quarter: 2015Q3

REPORT INFORMATION
  Report Type: Spontaneous
  Country: GB (occurrence: GB)
  Receive Date: 20150826
  Receipt Date: 20150826
  Transmission Date: 20151125
  Serious: Yes (Hospitalization)
  Sender: FDA-Public Use
  Company Number: GB-AUROBINDO-AUR-APL-2015-07522

PATIENT
  Age: 65 Year
  Sex: Male

DRUGS (7)
  1. LACTULOSE. [Concomitant]
     Active Substance: LACTULOSE
     Route: 048
     Dates: start: 20150106, end: 20150108
  2. PARACETAMOL [Concomitant]
     Active Substance: ACETAMINOPHEN
     Indication: MUSCULOSKELETAL PAIN
     Dosage: 1 G, UNK
     Route: 048
     Dates: start: 20141216
  3. PARACETAMOL [Concomitant]
     Active Substance: ACETAMINOPHEN
     Indication: BACK PAIN
     Dosage: 1 G, UNK
     Route: 048
     Dates: start: 20141216
  4. LISINOPRIL AUROBINDO TABLETS 20MG [Suspect]
     Active Substance: LISINOPRIL
     Indication: BLOOD PRESSURE INCREASED
     Dosage: 20 MG, ONCE A DAY
     Route: 048
     Dates: end: 20150217
  5. RIFAMPICIN [Suspect]
     Active Substance: RIFAMPIN
     Indication: NON-SMALL CELL LUNG CANCER
     Dosage: 600 MG, ONCE A DAY
     Route: 048
     Dates: start: 20150121, end: 20150210
  6. RANITIDINE [Concomitant]
     Active Substance: RANITIDINE\RANITIDINE HYDROCHLORIDE
     Indication: DYSPEPSIA
     Dosage: 150 MG, ONCE A DAY
     Route: 048
     Dates: start: 20150106
  7. LACTULOSE. [Concomitant]
     Active Substance: LACTULOSE
     Indication: FAECES HARD
     Dosage: 15 MG, ONCE A DAY
     Route: 048
     Dates: start: 20150109

REACTIONS (5)
  - Blood lactate dehydrogenase increased [Recovered/Resolved]
  - Blood sodium decreased [Recovered/Resolved]
  - Lymphocyte count decreased [Recovered/Resolved]
  - Hyperkalaemia [Recovered/Resolved]
  - Mean cell haemoglobin concentration decreased [Recovered/Resolved]

NARRATIVE: CASE EVENT DATE: 20150217
